FAERS Safety Report 8855011 (Version 5)
Quarter: 2013Q1

REPORT INFORMATION
  Report Type: Spontaneous
  Country: US (occurrence: US)
  Receive Date: 20121023
  Receipt Date: 20130311
  Transmission Date: 20140127
  Serious: Yes (Other)
  Sender: FDA-Public Use
  Company Number: US-PFIZER INC-2012260288

PATIENT
  Age: 68 Year
  Sex: Male

DRUGS (11)
  1. SUTENT [Suspect]
     Indication: METASTATIC RENAL CELL CARCINOMA
     Dosage: 50 MG DAILY FOR THE FIRST 42-DAY CYCLE
     Route: 048
     Dates: start: 20121010
  2. SUTENT [Suspect]
     Indication: METASTASES TO BONE
     Dosage: 25 MG, CYCLIC
     Route: 048
     Dates: start: 20121205
  3. FISH OIL [Concomitant]
     Dosage: UNK
  4. ALEVE [Concomitant]
     Indication: BACK PAIN
     Dosage: UNK, AS NEEDED
  5. ALEVE [Concomitant]
     Indication: BONE PAIN
  6. MAGIC MOUTHWASH [Concomitant]
     Dosage: UNK
  7. PROCHLORPERAZINE [Concomitant]
     Dosage: UNK
  8. PRILOSEC [Concomitant]
     Dosage: UNK
  9. COMPAZINE [Concomitant]
     Indication: NAUSEA
  10. GLUCOSAMINE [Concomitant]
     Indication: ARTHRITIS
  11. D3 1000 [Concomitant]

REACTIONS (11)
  - Hypertension [Recovering/Resolving]
  - Feeling abnormal [Recovered/Resolved]
  - Malaise [Unknown]
  - Pain [Unknown]
  - Fatigue [Not Recovered/Not Resolved]
  - Abdominal discomfort [Unknown]
  - Dyspepsia [Unknown]
  - Nausea [Unknown]
  - Stomatitis [Unknown]
  - Depression [Unknown]
  - Epistaxis [Unknown]
